FAERS Safety Report 25324322 (Version 1)
Quarter: 2025Q2

REPORT INFORMATION
  Report Type: Spontaneous
  Country: US (occurrence: None)
  Receive Date: 20250515
  Receipt Date: 20250515
  Transmission Date: 20250716
  Serious: Yes (Other)
  Sender: FDA-CTU
  Company Number: None

PATIENT
  Age: 74 Year
  Sex: Female
  Weight: 112.5 kg

DRUGS (1)
  1. OZEMPIC [Suspect]
     Active Substance: SEMAGLUTIDE
     Dates: start: 20240101, end: 20250510

REACTIONS (4)
  - Constipation [None]
  - Abdominal pain upper [None]
  - Therapy change [None]
  - Pain [None]

NARRATIVE: CASE EVENT DATE: 20240101
